FAERS Safety Report 19349400 (Version 3)
Quarter: 2021Q3

REPORT INFORMATION
  Report Type: Spontaneous
  Country: JP (occurrence: JP)
  Receive Date: 20210531
  Receipt Date: 20210921
  Transmission Date: 20211014
  Serious: Yes (Hospitalization, Other)
  Sender: FDA-Public Use
  Company Number: JP-AMGEN-JPNSP2019126733

PATIENT
  Age: 75 Year
  Sex: Male
  Weight: 53.5 kg

DRUGS (20)
  1. FESIN [SACCHARATED IRON OXIDE] [Concomitant]
     Active Substance: IRON SUCROSE
     Dosage: 80 MILLIGRAM, Q4WK
     Route: 065
  2. KIKLIN [Concomitant]
     Active Substance: BIXALOMER
     Dosage: 1500 MILLIGRAM, QD
     Route: 048
     Dates: start: 20200717
  3. DARBEPOETIN ALFA [Concomitant]
     Active Substance: DARBEPOETIN ALFA
     Dosage: 30 MICROGRAM, QWK
     Route: 065
     Dates: start: 20201113, end: 20201218
  4. NESP [Concomitant]
     Active Substance: DARBEPOETIN ALFA
     Dosage: 20 MICROGRAM, QWK
     Route: 065
     Dates: end: 20180803
  5. FOSRENOL [Concomitant]
     Active Substance: LANTHANUM CARBONATE
     Dosage: 750 MILLIGRAM, QD
     Route: 048
     Dates: start: 20200203
  6. NESP [Concomitant]
     Active Substance: DARBEPOETIN ALFA
     Dosage: 40 MICROGRAM, QWK
     Route: 065
     Dates: start: 20180824, end: 20181102
  7. NESP [Concomitant]
     Active Substance: DARBEPOETIN ALFA
     Dosage: 30 MICROGRAM, QWK
     Route: 065
     Dates: start: 20190412, end: 20190523
  8. NESP [Concomitant]
     Active Substance: DARBEPOETIN ALFA
     Dosage: 40 MICROGRAM, QWK
     Route: 065
     Dates: start: 20190524, end: 20191121
  9. HEPARININ [Concomitant]
     Dosage: UNK
     Route: 065
     Dates: end: 20200615
  10. NESP [Concomitant]
     Active Substance: DARBEPOETIN ALFA
     Dosage: 30 MICROGRAM, QWK
     Route: 065
     Dates: start: 20180810, end: 20180817
  11. NESP [Concomitant]
     Active Substance: DARBEPOETIN ALFA
     Dosage: 30 MICROGRAM, QWK
     Route: 065
     Dates: start: 20181109, end: 20181221
  12. DARBEPOETIN ALFA [Concomitant]
     Active Substance: DARBEPOETIN ALFA
     Dosage: 60 MICROGRAM, QWK
     Route: 065
     Dates: start: 20201225
  13. FOSRENOL [Concomitant]
     Active Substance: LANTHANUM CARBONATE
     Dosage: 1500 MILLIGRAM, QD
     Route: 048
     Dates: end: 20191220
  14. DARBEPOETIN ALFA [Concomitant]
     Active Substance: DARBEPOETIN ALFA
     Dosage: 20 MICROGRAM, QWK
     Route: 065
     Dates: start: 20200424, end: 20201106
  15. PARSABIV [Suspect]
     Active Substance: ETELCALCETIDE HYDROCHLORIDE
     Indication: HYPERPARATHYROIDISM SECONDARY
     Dosage: 5 MILLIGRAM, 3 TIMES/WK
     Route: 010
     Dates: start: 20180730, end: 20180827
  16. NESP [Concomitant]
     Active Substance: DARBEPOETIN ALFA
     Dosage: 20 MICROGRAM, QWK
     Route: 065
     Dates: start: 20181226, end: 20190405
  17. MAXACALCITOL [Concomitant]
     Active Substance: MAXACALCITOL
     Dosage: 2.5 MICROGRAM, 2 TIMES/WK
     Route: 042
  18. ORKEDIA [Concomitant]
     Active Substance: EVOCALCET
     Dosage: 1 MILLIGRAM, QD
     Route: 048
     Dates: start: 20180919, end: 20190304
  19. ORKEDIA [Concomitant]
     Active Substance: EVOCALCET
     Dosage: 2 MILLIGRAM, QD
     Route: 048
     Dates: start: 20190305
  20. DARBEPOETIN ALFA [Concomitant]
     Active Substance: DARBEPOETIN ALFA
     Dosage: 30 MICROGRAM, QWK
     Route: 065

REACTIONS (4)
  - Hand fracture [Not Recovered/Not Resolved]
  - Peripheral arterial occlusive disease [Recovering/Resolving]
  - Dyskinesia [Recovered/Resolved]
  - Melaena [Recovering/Resolving]

NARRATIVE: CASE EVENT DATE: 20180820
